FAERS Safety Report 17426872 (Version 2)
Quarter: 2020Q1

REPORT INFORMATION
  Report Type: Spontaneous
  Country: US (occurrence: US)
  Receive Date: 20200217
  Receipt Date: 20200217
  Transmission Date: 20200409
  Serious: Yes (Other)
  Sender: FDA-Public Use
  Company Number: US-GILEAD-2020-0450734

PATIENT
  Sex: Male

DRUGS (4)
  1. REYATAZ [Concomitant]
     Active Substance: ATAZANAVIR SULFATE
     Indication: HIV INFECTION
  2. PREZISTA [Concomitant]
     Active Substance: DARUNAVIR ETHANOLATE
     Indication: HIV INFECTION
  3. TRUVADA [Suspect]
     Active Substance: EMTRICITABINE\TENOFOVIR DISOPROXIL FUMARATE
     Indication: HIV INFECTION
     Dosage: UNK
     Route: 065
  4. NORVIR [Concomitant]
     Active Substance: RITONAVIR
     Indication: HIV INFECTION

REACTIONS (6)
  - Chronic hepatitis B [Unknown]
  - Intentional dose omission [Unknown]
  - Jaundice [Unknown]
  - Anger [Unknown]
  - Astigmatism [Unknown]
  - Hepatic enzyme increased [Unknown]
